FAERS Safety Report 23026716 (Version 2)
Quarter: 2023Q4

REPORT INFORMATION
  Report Type: Spontaneous
  Country: US (occurrence: US)
  Receive Date: 20231004
  Receipt Date: 20231109
  Transmission Date: 20240110
  Serious: Yes (Other)
  Sender: FDA-Public Use
  Company Number: US-COOPERSURGICAL, INC.-US-2023CPS003104

PATIENT
  Age: 37 Year
  Sex: Female
  Weight: 79.819 kg

DRUGS (1)
  1. PARAGARD T 380A [Suspect]
     Active Substance: COPPER
     Indication: Contraception
     Dosage: UNK
     Route: 015
     Dates: start: 20230920, end: 20230920

REACTIONS (5)
  - Seizure [Recovered/Resolved]
  - Syncope [Recovered/Resolved]
  - Procedural pain [Recovered/Resolved]
  - Pallor [Unknown]
  - Cold sweat [Unknown]

NARRATIVE: CASE EVENT DATE: 20230920
